FAERS Safety Report 18012859 (Version 1)
Quarter: 2020Q3

REPORT INFORMATION
  Report Type: Spontaneous
  Country: US (occurrence: US)
  Receive Date: 20200710
  Receipt Date: 20200710
  Transmission Date: 20201103
  Serious: Yes (Hospitalization)
  Sender: FDA-Public Use
  Company Number: None

PATIENT
  Age: 78 Year
  Sex: Female

DRUGS (18)
  1. AZATHIOPRINE. [Concomitant]
     Active Substance: AZATHIOPRINE
  2. TIMOLOL. [Concomitant]
     Active Substance: TIMOLOL
  3. COLESEVELAM [Concomitant]
     Active Substance: COLESEVELAM
  4. EZETIMIBE. [Concomitant]
     Active Substance: EZETIMIBE
  5. SODIUM BICARBONATE. [Concomitant]
     Active Substance: SODIUM BICARBONATE
  6. LABETALOL [Concomitant]
     Active Substance: LABETALOL\LABETALOL HYDROCHLORIDE
  7. FEBUXOSTAT. [Concomitant]
     Active Substance: FEBUXOSTAT
  8. HYDRALAZINE [Concomitant]
     Active Substance: HYDRALAZINE HYDROCHLORIDE
  9. NIFEDIPINE. [Concomitant]
     Active Substance: NIFEDIPINE
  10. PREDNISONE. [Concomitant]
     Active Substance: PREDNISONE
  11. CYANOCOBALAMINE [Concomitant]
     Active Substance: CYANOCOBALAMIN
  12. DICYCLOMINE [Concomitant]
     Active Substance: DICYCLOMINE HYDROCHLORIDE
  13. CIMZIA [Suspect]
     Active Substance: CERTOLIZUMAB PEGOL
     Indication: CROHN^S DISEASE
     Dosage: ?          OTHER FREQUENCY:EVERY 14 DAYS;?
     Route: 058
     Dates: start: 20180203
  14. BUDESONIDE. [Concomitant]
     Active Substance: BUDESONIDE
  15. FUROSEMIDE. [Concomitant]
     Active Substance: FUROSEMIDE
  16. LORAZEPAM. [Concomitant]
     Active Substance: LORAZEPAM
  17. CLOPIDOGREL [Concomitant]
     Active Substance: CLOPIDOGREL BISULFATE
  18. CARVEDILOL. [Concomitant]
     Active Substance: CARVEDILOL

REACTIONS (1)
  - Dialysis [None]

NARRATIVE: CASE EVENT DATE: 20200701
